FAERS Safety Report 14963623 (Version 1)
Quarter: 2018Q2

REPORT INFORMATION
  Report Type: Spontaneous
  Country: CA (occurrence: CA)
  Receive Date: 20180601
  Receipt Date: 20180601
  Transmission Date: 20180711
  Serious: Yes (Disabling)
  Sender: FDA-Public Use
  Company Number: CA-FRESENIUS KABI-FK201806299

PATIENT
  Age: 58 Year
  Sex: Female

DRUGS (1)
  1. PAMIDRONATE (MANUFACTURER UNKNOWN) [Suspect]
     Active Substance: PAMIDRONATE DISODIUM
     Indication: OSTEOPOROSIS
     Dosage: 1 EVERY 3 MONTHS
     Route: 041

REACTIONS (6)
  - Bedridden [Recovering/Resolving]
  - Bone pain [Recovering/Resolving]
  - Diarrhoea [None]
  - Myalgia [Recovering/Resolving]
  - Pyrexia [Recovering/Resolving]
  - Arthralgia [Recovering/Resolving]
